FAERS Safety Report 6336806-1 (Version None)
Quarter: 2009Q3

REPORT INFORMATION
  Report Type: 
  Country: None (occurrence: None)
  Receive Date: 20090901
  Receipt Date: 20090821
  Transmission Date: 20100115
  Serious: Yes (Other)
  Sender: FDA-Public Use
  Company Number: TR-ELI_LILLY_AND_COMPANY-TR200908004860

PATIENT
  Sex: Female

DRUGS (5)
  1. HUMULIN 70/30 [Suspect]
     Dosage: UNK UNK, 2/D
     Route: 058
     Dates: start: 20070806
  2. HUMULIN 70/30 [Suspect]
     Dosage: 20 IU, EACH EVENING
     Route: 058
     Dates: start: 20070806
  3. GLUKOFEN [Concomitant]
     Dosage: UNK UNK, 2/D
     Route: 048
  4. ATORVASTATIN [Concomitant]
     Indication: BLOOD CHOLESTEROL
     Dosage: UNK UNK, DAILY (1/D)
     Route: 048
  5. DELIX [Concomitant]
     Indication: HYPERTENSION
     Dosage: UNK UNK, 2/D
     Route: 048

REACTIONS (1)
  - BLINDNESS [None]
